FAERS Safety Report 9699921 (Version 2)
Quarter: 2014Q1

REPORT INFORMATION
  Report Type: Spontaneous
  Country: US (occurrence: US)
  Receive Date: 20131121
  Receipt Date: 20140110
  Transmission Date: 20141002
  Serious: Yes (Hospitalization, Other)
  Sender: FDA-Public Use
  Company Number: US-MERCK-1311USA006987

PATIENT
  Sex: Female

DRUGS (1)
  1. SAPHRIS [Suspect]
     Indication: SCHIZOPHRENIA
     Route: 060

REACTIONS (6)
  - Renal failure [Recovering/Resolving]
  - Dialysis [Recovering/Resolving]
  - Adverse event [Unknown]
  - Oedema peripheral [Unknown]
  - Face oedema [Unknown]
  - Intentional drug misuse [Unknown]
